FAERS Safety Report 25813763 (Version 2)
Quarter: 2025Q4

REPORT INFORMATION
  Report Type: Report from Study
  Country: US (occurrence: US)
  Receive Date: 20250917
  Receipt Date: 20251016
  Transmission Date: 20260118
  Serious: No
  Sender: AGIOS PHARMACEUTICALS
  Company Number: US-AGIOS-2509US04463

PATIENT
  Sex: Male

DRUGS (1)
  1. MITAPIVAT [Suspect]
     Active Substance: MITAPIVAT
     Indication: Pyruvate kinase deficiency anaemia
     Dosage: 50 MILLIGRAM, BID
     Route: 048
     Dates: start: 20240731

REACTIONS (1)
  - Renal transplant [Recovered/Resolved]
